FAERS Safety Report 8268784-2 (Version None)
Quarter: 2012Q2

REPORT INFORMATION
  Report Type: 
  Country: None (occurrence: None)
  Receive Date: 20120409
  Receipt Date: 20120409
  Transmission Date: 20120825
  Serious: Yes (Other)
  Sender: FDA-Public Use
  Company Number: None

PATIENT
  Sex: Female
  Weight: 84.37 kg

DRUGS (1)
  1. PRIVIGEN [Suspect]
     Indication: LUNG TRANSPLANT REJECTION
     Dosage: 10GM
     Route: 041
     Dates: start: 20111201, end: 20111205

REACTIONS (2)
  - RENAL FAILURE ACUTE [None]
  - RESPIRATORY FAILURE [None]
